FAERS Safety Report 10359895 (Version 1)
Quarter: 2014Q3

REPORT INFORMATION
  Report Type: Spontaneous
  Country: DE (occurrence: None)
  Receive Date: 20140730
  Receipt Date: 20140730
  Transmission Date: 20150326
  Serious: Yes (Hospitalization)
  Sender: FDA-Public Use
  Company Number: 2009RR-20486

PATIENT
  Age: 33 Year
  Sex: Female
  Weight: 97 kg

DRUGS (3)
  1. ROCEPHIN (CEFTRIAXONE) [Concomitant]
  2. ACETAMINOPHEN. [Suspect]
     Active Substance: ACETAMINOPHEN
     Indication: PYREXIA
     Route: 048
     Dates: start: 20080722, end: 20080727
  3. METAMIZOLE [Suspect]
     Active Substance: METAMIZOLE
     Indication: PYREXIA
     Route: 048
     Dates: start: 20080725, end: 20080729

REACTIONS (6)
  - White blood cell count increased [None]
  - Chronic hepatitis [None]
  - Hepatic enzyme increased [None]
  - Drug intolerance [None]
  - Drug-induced liver injury [None]
  - Portal fibrosis [None]

NARRATIVE: CASE EVENT DATE: 20080726
